FAERS Safety Report 4361533-X (Version None)
Quarter: 2004Q2

REPORT INFORMATION
  Report Type: 
  Country: None (occurrence: None)
  Receive Date: 20040521
  Receipt Date: 20040330
  Transmission Date: 20050107
  Serious: Yes (Hospitalization)
  Sender: FDA-Public Use
  Company Number: US-GLAXOSMITHKLINE-A0505136A

PATIENT
  Age: 30 Year
  Sex: Female

DRUGS (2)
  1. ZYBAN [Suspect]
     Route: 048
     Dates: start: 19980301
  2. HYDROCODONE [Concomitant]
     Indication: PAIN
     Route: 065

REACTIONS (1)
  - CONVULSION [None]
